FAERS Safety Report 21500789 (Version 2)
Quarter: 2023Q1

REPORT INFORMATION
  Report Type: Report from Study
  Country: US (occurrence: US)
  Receive Date: 20221025
  Receipt Date: 20230109
  Transmission Date: 20230418
  Serious: No
  Sender: FDA-Public Use
  Company Number: US-ABBVIE-4168855

PATIENT
  Age: 60 Year
  Sex: Female
  Weight: 83.914 kg

DRUGS (6)
  1. VENCLEXTA [Suspect]
     Active Substance: VENETOCLAX
     Indication: B-cell small lymphocytic lymphoma
     Dosage: STRENGTH 200 MG
     Route: 048
     Dates: start: 20211115, end: 20211130
  2. VENCLEXTA [Suspect]
     Active Substance: VENETOCLAX
     Indication: B-cell small lymphocytic lymphoma
     Route: 048
     Dates: start: 20211223, end: 20221202
  3. VENCLEXTA [Suspect]
     Active Substance: VENETOCLAX
     Indication: B-cell small lymphocytic lymphoma
     Route: 048
     Dates: start: 20211206, end: 20211221
  4. ALLOPURINOL [Concomitant]
     Active Substance: ALLOPURINOL
     Indication: Prophylaxis
  5. GAZYVA [Suspect]
     Active Substance: OBINUTUZUMAB
     Indication: B-cell small lymphocytic lymphoma
     Route: 065
     Dates: start: 20181018, end: 20220328
  6. DEXAMETHASONE [Concomitant]
     Active Substance: DEXAMETHASONE
     Indication: Prophylaxis

REACTIONS (13)
  - Dental caries [Recovered/Resolved]
  - Pain in extremity [Recovered/Resolved]
  - Platelet count decreased [Recovered/Resolved]
  - Fatigue [Unknown]
  - Tendonitis [Recovered/Resolved]
  - Pain in extremity [Unknown]
  - Insomnia [Recovered/Resolved]
  - Arthralgia [Recovered/Resolved]
  - Fatigue [Recovered/Resolved]
  - Noninfective gingivitis [Recovered/Resolved]
  - Neutrophil count decreased [Recovered/Resolved]
  - Herpes zoster [Recovered/Resolved]
  - Haemoglobin decreased [Recovered/Resolved]

NARRATIVE: CASE EVENT DATE: 20211101
